FAERS Safety Report 15435684 (Version 4)
Quarter: 2018Q4

REPORT INFORMATION
  Report Type: Spontaneous
  Country: JP (occurrence: JP)
  Receive Date: 20180927
  Receipt Date: 20181204
  Transmission Date: 20190204
  Serious: Yes (Hospitalization, Other)
  Sender: FDA-Public Use
  Company Number: JP-UCBSA-2018043076

PATIENT
  Age: 17 Year
  Sex: Female

DRUGS (5)
  1. E KEPPRA [Suspect]
     Active Substance: LEVETIRACETAM
     Indication: EPILEPSY
     Dosage: 2000 MG DAILY
     Route: 048
     Dates: start: 20171102, end: 20171110
  2. E KEPPRA [Suspect]
     Active Substance: LEVETIRACETAM
     Dosage: DOSE DECREASED TO 1000 MG/DAY
     Route: 048
     Dates: start: 20171118, end: 20180215
  3. E KEPPRA [Suspect]
     Active Substance: LEVETIRACETAM
     Dosage: DOSE DCREASED TO 1500 MG/DAY
     Route: 048
     Dates: start: 20171111, end: 20171117
  4. E KEPPRA [Suspect]
     Active Substance: LEVETIRACETAM
     Dosage: DOSE INCREASED TO 2000MG/DAY
     Route: 048
     Dates: start: 20180216, end: 20180508
  5. CARBAMAZEPINE. [Concomitant]
     Active Substance: CARBAMAZEPINE
     Indication: EPILEPSY
     Dosage: UNKNOWN DOSE
     Route: 048

REACTIONS (1)
  - Drug eruption [Recovered/Resolved]

NARRATIVE: CASE EVENT DATE: 20180411
